FAERS Safety Report 11462701 (Version 1)
Quarter: 2015Q3

REPORT INFORMATION
  Report Type: Spontaneous
  Country: US (occurrence: US)
  Receive Date: 20150831
  Receipt Date: 20150831
  Transmission Date: 20151125
  Serious: No
  Sender: FDA-Public Use
  Company Number: US-ELI_LILLY_AND_COMPANY-US201101001497

PATIENT
  Sex: Female

DRUGS (1)
  1. CYMBALTA [Suspect]
     Active Substance: DULOXETINE HYDROCHLORIDE
     Indication: NERVE INJURY
     Dosage: 20 MG, UNKNOWN

REACTIONS (9)
  - Muscular weakness [Unknown]
  - Speech disorder [Unknown]
  - Feeling abnormal [Unknown]
  - Insomnia [Recovered/Resolved]
  - Dizziness [Unknown]
  - Asthenia [Unknown]
  - Off label use [Recovered/Resolved]
  - Dry mouth [Unknown]
  - Night sweats [Unknown]
